FAERS Safety Report 5368636-1 (Version None)
Quarter: 2007Q2

REPORT INFORMATION
  Report Type: 
  Country: None (occurrence: None)
  Receive Date: 20070625
  Receipt Date: 20070611
  Transmission Date: 20071010
  Serious: Yes (Life-Threatening, Hospitalization)
  Sender: FDA-Public Use
  Company Number: CH-AMGEN-UK219840

PATIENT
  Age: 62 Year
  Sex: Female
  Weight: 63 kg

DRUGS (11)
  1. NEUPOGEN [Suspect]
     Indication: CHEMOTHERAPY
     Route: 058
     Dates: start: 20040821, end: 20040825
  2. CYCLOPHOSPHAMIDE [Suspect]
     Route: 065
  3. VINCRISTINE [Suspect]
     Route: 065
  4. RITUXIMAB [Concomitant]
     Route: 065
  5. DOXORUBICIN HCL [Concomitant]
     Route: 065
  6. PREDNISONE TAB [Concomitant]
     Route: 065
  7. ACYCLOVIR [Concomitant]
     Route: 065
  8. CITALOPRAM HYDROBROMIDE [Concomitant]
     Route: 048
  9. RAMIPRIL [Concomitant]
     Route: 048
  10. ZOLPIDEM [Concomitant]
     Route: 048
  11. SACCHAROMYCES BOULARDII [Concomitant]
     Route: 048

REACTIONS (6)
  - AMNESIA [None]
  - DEHYDRATION [None]
  - DIARRHOEA [None]
  - GENERAL PHYSICAL CONDITION ABNORMAL [None]
  - NAUSEA [None]
  - REVERSIBLE POSTERIOR LEUKOENCEPHALOPATHY SYNDROME [None]
